FAERS Safety Report 6271729-8 (Version None)
Quarter: 2009Q3

REPORT INFORMATION
  Report Type: 
  Country: None (occurrence: None)
  Receive Date: 20090717
  Receipt Date: 20071218
  Transmission Date: 20100115
  Serious: Yes (Other)
  Sender: FDA-Public Use
  Company Number: US-ASTRAZENECA-2007UW01944

PATIENT
  Age: 11838 Day
  Sex: Female
  Weight: 92.5 kg

DRUGS (36)
  1. SEROQUEL [Suspect]
     Indication: SCHIZOAFFECTIVE DISORDER
     Dosage: 25-300 MG
     Route: 048
     Dates: start: 20040422
  2. SEROQUEL [Suspect]
     Route: 048
     Dates: start: 20040101
  3. SEROQUEL [Suspect]
     Dosage: 300 TO 450 MG
     Route: 048
     Dates: start: 20050414
  4. GEODON [Concomitant]
     Dates: start: 20050428
  5. COMBIVENT [Concomitant]
  6. PROMETHAZINE [Concomitant]
  7. CEPHALEXIN [Concomitant]
  8. NAPROXEN [Concomitant]
  9. FLUCONAZOLE [Concomitant]
  10. BETAMETHASONE DIP 0.05% LOTN [Concomitant]
  11. CLOTRIMAZOLE-BETHAMETHASONE LOT [Concomitant]
  12. GENTAMICIN-GENTAX 0.3% OPTH OINT [Concomitant]
  13. AZITHROMYCIN [Concomitant]
  14. METFORMIN HCL [Concomitant]
  15. CLONAZEPAM [Concomitant]
  16. NICOTINE 23KG/24 PATCH [Concomitant]
     Dosage: 23KG/24H
  17. FLOVENT HFA 130 MCG INH 12G [Concomitant]
     Dosage: HFA 130 MCG INH 12 G
  18. PENICILLIN VK [Concomitant]
  19. HYDROCODONE BITARTRATE + ACETAMINOPHEN [Concomitant]
     Dosage: 5 MG/ 500 MG
  20. ALBUTEROL INHALER (COMPLETE) [Concomitant]
  21. ADVAIR DISKUS 100/50 [Concomitant]
     Dosage: 100/50 MCG {GREEN}
  22. SIMVASTATIN [Concomitant]
  23. KETOROLAC TROMETHAMINE [Concomitant]
  24. HYDROCHLOROTHIAZIDE [Concomitant]
  25. ETODOLAC ER [Concomitant]
  26. CYCLOBENZAPRINE [Concomitant]
  27. AMBIEN [Concomitant]
     Dates: start: 20050414
  28. COMBIVENT [Concomitant]
     Dates: start: 20050621
  29. LISINOPRIL AND HYDROCHLOROTHIAZIDE [Concomitant]
     Dates: start: 20060214
  30. LISINOPRIL AND HYDROCHLOROTHIAZIDE [Concomitant]
     Dosage: 20/12.5 MG
  31. METFORMIN HCL [Concomitant]
     Dates: start: 20060227
  32. CYMBALTA [Concomitant]
     Dosage: 40-80 MG
     Dates: start: 20060505
  33. CYMBALTA [Concomitant]
  34. ACTOS [Concomitant]
     Dates: start: 20060624
  35. ADVAIR HFA [Concomitant]
     Dates: start: 20060914
  36. ALBUTEROL [Concomitant]
     Dates: start: 20060914

REACTIONS (5)
  - BLOOD CHOLESTEROL INCREASED [None]
  - DIABETES MELLITUS INADEQUATE CONTROL [None]
  - DIABETIC NEPHROPATHY [None]
  - OBESITY [None]
  - TYPE 2 DIABETES MELLITUS [None]
